FAERS Safety Report 9560641 (Version 1)
Quarter: 2013Q3

REPORT INFORMATION
  Report Type: Spontaneous
  Country: CN (occurrence: CN)
  Receive Date: 20130927
  Receipt Date: 20130927
  Transmission Date: 20140515
  Serious: Yes (Hospitalization)
  Sender: FDA-Public Use
  Company Number: CN-PFIZER INC-2013274669

PATIENT
  Age: 75 Year
  Sex: Male
  Weight: 69 kg

DRUGS (2)
  1. UNASYN [Suspect]
     Indication: URINARY TRACT INFECTION
     Dosage: 2.25 G, 3X/DAY
     Route: 041
     Dates: start: 20110829, end: 20110907
  2. FLUCONAZOLE [Concomitant]
     Indication: URINARY TRACT INFECTION
     Dosage: UNK
     Dates: start: 20110829

REACTIONS (1)
  - Thrombocytopenic purpura [Recovered/Resolved]
